FAERS Safety Report 6079305-7 (Version None)
Quarter: 2009Q1

REPORT INFORMATION
  Report Type: 
  Country: None (occurrence: None)
  Receive Date: 20090216
  Receipt Date: 20090211
  Transmission Date: 20090719
  Serious: Yes (Death, Life-Threatening, Hospitalization, Disabling, Other)
  Sender: FDA-Public Use
  Company Number: US-MERCK-0807USA04321

PATIENT
  Age: 15 Year
  Sex: Female
  Weight: 50 kg

DRUGS (7)
  1. SINGULAIR [Suspect]
     Indication: ASTHMA
     Route: 048
     Dates: start: 20071201, end: 20080101
  2. SINGULAIR [Suspect]
     Route: 048
     Dates: start: 20020101
  3. SINGULAIR [Suspect]
     Indication: RHINITIS ALLERGIC
     Route: 048
     Dates: start: 20071201, end: 20080101
  4. SINGULAIR [Suspect]
     Route: 048
     Dates: start: 20020101
  5. SYNTHROID [Concomitant]
     Indication: HYPOTHYROIDISM
     Route: 065
  6. SINGULAIR [Suspect]
     Route: 048
     Dates: start: 19990101
  7. SINGULAIR [Suspect]
     Route: 048
     Dates: start: 19990101

REACTIONS (4)
  - COMPLETED SUICIDE [None]
  - HEADACHE [None]
  - SUICIDAL IDEATION [None]
  - SUICIDE ATTEMPT [None]
